FAERS Safety Report 17517733 (Version 1)
Quarter: 2020Q1

REPORT INFORMATION
  Report Type: Other
  Country: SE (occurrence: SE)
  Receive Date: 20200309
  Receipt Date: 20200309
  Transmission Date: 20200409
  Serious: Yes (Other)
  Sender: FDA-Public Use
  Company Number: SE-HARMONY BIOSCIENCES-2020HMY00193

PATIENT
  Age: 56 Year
  Sex: Male

DRUGS (2)
  1. WAKIX [Suspect]
     Active Substance: PITOLISANT HYDROCHLORIDE
     Indication: CATAPLEXY
  2. WAKIX [Suspect]
     Active Substance: PITOLISANT HYDROCHLORIDE
     Indication: NARCOLEPSY
     Dosage: 36 MG, 1X/DAY
     Route: 048
     Dates: start: 201807

REACTIONS (3)
  - Rebound effect [Not Recovered/Not Resolved]
  - Cataplexy [Not Recovered/Not Resolved]
  - Product dose omission [Not Recovered/Not Resolved]

NARRATIVE: CASE EVENT DATE: 201912
